FAERS Safety Report 16068535 (Version 3)
Quarter: 2019Q2

REPORT INFORMATION
  Report Type: Spontaneous
  Country: DE (occurrence: DE)
  Receive Date: 20190313
  Receipt Date: 20190419
  Transmission Date: 20190711
  Serious: Yes (Hospitalization, Disabling, Other)
  Sender: FDA-Public Use
  Company Number: PHHY2019DE001348

PATIENT
  Age: 75 Year
  Sex: Female
  Weight: 60 kg

DRUGS (7)
  1. NILOTINIB [Suspect]
     Active Substance: NILOTINIB
     Dosage: 800 MG, QD
     Route: 048
     Dates: start: 201402
  2. ACETYLSALICYLIC ACID [Concomitant]
     Active Substance: ASPIRIN
     Indication: PLATELET FUNCTION TEST ABNORMAL
     Dosage: 100 MG, QD
     Route: 065
  3. MARCUMAR [Concomitant]
     Active Substance: PHENPROCOUMON
     Indication: POST PROCEDURAL COMPLICATION
     Dosage: UNK
     Route: 065
  4. NILOTINIB [Suspect]
     Active Substance: NILOTINIB
     Dosage: 300 MG, BID (600 MG QD)
     Route: 048
     Dates: start: 201403
  5. CIPROFLOXACIN. [Concomitant]
     Active Substance: CIPROFLOXACIN
     Indication: PRODUCT USED FOR UNKNOWN INDICATION
     Dosage: 500 MG, BID
     Route: 065
  6. NOVALGIN (METAMIZOLE SODIUM) [Concomitant]
     Active Substance: METAMIZOLE SODIUM
     Indication: PRODUCT USED FOR UNKNOWN INDICATION
     Dosage: UNK
     Route: 065
  7. NILOTINIB [Suspect]
     Active Substance: NILOTINIB
     Indication: CHRONIC MYELOID LEUKAEMIA TRANSFORMATION
     Dosage: 400 MG, BID (800 MG, QD)
     Route: 048
     Dates: start: 200812, end: 201402

REACTIONS (16)
  - Postoperative wound complication [Unknown]
  - Onychomycosis [Unknown]
  - Diabetes mellitus [Unknown]
  - Necrosis [Unknown]
  - Peripheral arterial occlusive disease [Not Recovered/Not Resolved]
  - Lymphoedema [Unknown]
  - Wound [Unknown]
  - Inflammatory marker increased [Unknown]
  - Arterial bypass occlusion [Unknown]
  - Pyrexia [Unknown]
  - Diarrhoea [Recovered/Resolved]
  - Pathological fracture [Unknown]
  - Decubitus ulcer [Unknown]
  - Gait disturbance [Unknown]
  - Post procedural swelling [Unknown]
  - Skin ulcer [Unknown]

NARRATIVE: CASE EVENT DATE: 201712
